FAERS Safety Report 25231529 (Version 2)
Quarter: 2025Q2

REPORT INFORMATION
  Report Type: Report from Study
  Country: FR (occurrence: FR)
  Receive Date: 20250423
  Receipt Date: 20250507
  Transmission Date: 20250717
  Serious: Yes (Hospitalization, Other)
  Sender: ABBVIE
  Company Number: FR-STADA-01373865

PATIENT
  Age: 76 Year
  Sex: Male

DRUGS (5)
  1. OFLOXACIN [Suspect]
     Active Substance: OFLOXACIN
     Indication: Antibiotic prophylaxis
     Route: 065
  2. RIFAMPIN [Concomitant]
     Active Substance: RIFAMPIN
     Indication: Disseminated Bacillus Calmette-Guerin infection
     Route: 065
  3. ETHAMBUTOL [Suspect]
     Active Substance: ETHAMBUTOL HYDROCHLORIDE
     Indication: Disseminated Bacillus Calmette-Guerin infection
     Route: 065
  4. BCG VACCINE [Concomitant]
     Active Substance: BCG VACCINE
     Indication: Bladder cancer
     Route: 043
  5. ISONIAZID [Concomitant]
     Active Substance: ISONIAZID
     Indication: Disseminated Bacillus Calmette-Guerin infection
     Route: 065

REACTIONS (2)
  - Optic neuritis [Unknown]
  - Tendon disorder [Unknown]
